FAERS Safety Report 4866065-8 (Version None)
Quarter: 2005Q4

REPORT INFORMATION
  Report Type: 
  Country: None (occurrence: None)
  Receive Date: 20051221
  Receipt Date: 20051212
  Transmission Date: 20060501
  Serious: Yes (Hospitalization)
  Sender: FDA-Public Use
  Company Number: HQWYE946112DEC05

PATIENT
  Age: 63 Year
  Sex: Male

DRUGS (1)
  1. RAPAMUNE [Suspect]
     Indication: PROPHYLAXIS AGAINST TRANSPLANT REJECTION
     Dosage: 1 MG/2 MG ALTERNATE DAYS
     Route: 048
     Dates: start: 20050215

REACTIONS (5)
  - ANOREXIA [None]
  - DEPRESSION [None]
  - INFLUENZA [None]
  - LETHARGY [None]
  - NAUSEA [None]
